FAERS Safety Report 4902221-8 (Version None)
Quarter: 2006Q1

REPORT INFORMATION
  Report Type: 
  Country: None (occurrence: None)
  Receive Date: 20060202
  Receipt Date: 20060124
  Transmission Date: 20060701
  Serious: Yes (Death, Other)
  Sender: FDA-Public Use
  Company Number: 163-20785-05110203

PATIENT
  Age: 79 Year
  Sex: Male

DRUGS (8)
  1. THALOMID [Suspect]
     Indication: MULTIPLE MYELOMA
     Dosage: 200 MG, DAILY, ORAL; 400 MG, DAILY, ORAL
     Route: 048
     Dates: start: 20051027, end: 20051109
  2. THALOMID [Suspect]
     Indication: MULTIPLE MYELOMA
     Dosage: 200 MG, DAILY, ORAL; 400 MG, DAILY, ORAL
     Route: 048
     Dates: start: 20051110, end: 20051117
  3. THALOMID [Suspect]
     Indication: MULTIPLE MYELOMA
     Dosage: 200 MG, DAILY, ORAL; 400 MG, DAILY, ORAL
     Route: 048
     Dates: start: 20050101, end: 20060101
  4. ALBUTEROL [Concomitant]
  5. FLOVENT [Concomitant]
  6. SPIRIVA [Concomitant]
  7. DECADRON [Concomitant]
  8. VICODIN [Concomitant]

REACTIONS (1)
  - HALLUCINATION [None]
